FAERS Safety Report 12658595 (Version 1)
Quarter: 2016Q3

REPORT INFORMATION
  Report Type: Spontaneous
  Country: US (occurrence: None)
  Receive Date: 20160816
  Receipt Date: 20160816
  Transmission Date: 20161109
  Serious: Yes (Life-Threatening)
  Sender: FDA-Public Use
  Company Number: None

PATIENT
  Age: 65 Year
  Sex: Male
  Weight: 88 kg

DRUGS (3)
  1. ENOXAPARIN [Suspect]
     Active Substance: ENOXAPARIN
     Indication: SURGERY
     Route: 058
     Dates: start: 20101226, end: 20110101
  2. ENOXAPARIN [Suspect]
     Active Substance: ENOXAPARIN
     Indication: DEEP VEIN THROMBOSIS
     Route: 058
     Dates: start: 20101226, end: 20110101
  3. ENOXAPARIN [Suspect]
     Active Substance: ENOXAPARIN
     Indication: CARDIOVASCULAR DISORDER
     Route: 058
     Dates: start: 20101226, end: 20110101

REACTIONS (4)
  - Haematoma [None]
  - Unresponsive to stimuli [None]
  - Skin haemorrhage [None]
  - Loss of consciousness [None]

NARRATIVE: CASE EVENT DATE: 20110101
